FAERS Safety Report 19240497 (Version 4)
Quarter: 2021Q3

REPORT INFORMATION
  Report Type: Other
  Country: US (occurrence: US)
  Receive Date: 20210511
  Receipt Date: 20210730
  Transmission Date: 20211014
  Serious: Yes (Hospitalization, Other)
  Sender: FDA-Public Use
  Company Number: US-ROCHE-2825086

PATIENT
  Sex: Female
  Weight: 81.27 kg

DRUGS (36)
  1. ACTEMRA [Suspect]
     Active Substance: TOCILIZUMAB
  2. LIORESAL [Concomitant]
     Active Substance: BACLOFEN
     Dosage: AT BEDTIME
     Route: 048
  3. ACTEMRA [Suspect]
     Active Substance: TOCILIZUMAB
     Indication: POLYMYALGIA RHEUMATICA
     Dosage: INJECT 162MG (0.9ML) SUBCUTANEOUSLY EVERY 7 DAY(S)
     Route: 058
  4. ACTEMRA [Suspect]
     Active Substance: TOCILIZUMAB
  5. ACTEMRA [Suspect]
     Active Substance: TOCILIZUMAB
     Indication: BACK PAIN
  6. VALIUM [Suspect]
     Active Substance: DIAZEPAM
     Indication: PRODUCT USED FOR UNKNOWN INDICATION
     Route: 065
  7. ACTEMRA [Suspect]
     Active Substance: TOCILIZUMAB
     Indication: CHRONIC MYELOMONOCYTIC LEUKAEMIA
  8. ACTEMRA [Suspect]
     Active Substance: TOCILIZUMAB
     Indication: SPINAL PAIN
  9. ACTEMRA [Suspect]
     Active Substance: TOCILIZUMAB
  10. ACTEMRA [Suspect]
     Active Substance: TOCILIZUMAB
  11. PRILOSEC [Concomitant]
     Active Substance: OMEPRAZOLE MAGNESIUM
     Route: 048
  12. ACTEMRA [Suspect]
     Active Substance: TOCILIZUMAB
  13. ACTEMRA [Suspect]
     Active Substance: TOCILIZUMAB
  14. BIOTIN [Concomitant]
     Active Substance: BIOTIN
     Route: 048
  15. TURMERIC [Concomitant]
     Active Substance: HERBALS\TURMERIC
     Route: 048
  16. PREDNISONE. [Concomitant]
     Active Substance: PREDNISONE
  17. ACTEMRA [Suspect]
     Active Substance: TOCILIZUMAB
     Indication: GIANT CELL ARTERITIS
     Dosage: INJECT IN SKIN, FOR 3 MONTHS?NEXT DATE OF TREATMENT: 11/JAN/2018
     Route: 058
  18. ACTEMRA [Suspect]
     Active Substance: TOCILIZUMAB
  19. ACTEMRA [Suspect]
     Active Substance: TOCILIZUMAB
     Indication: ADVERSE DRUG REACTION
  20. ACTEMRA [Suspect]
     Active Substance: TOCILIZUMAB
  21. ACIDOPHILUS PROBIOTIC BLEND [Concomitant]
     Dosage: 30 CAPSULE
     Route: 048
  22. VALIUM [Concomitant]
     Active Substance: DIAZEPAM
  23. ACTEMRA [Suspect]
     Active Substance: TOCILIZUMAB
  24. ECOTRIN [Concomitant]
     Active Substance: ASPIRIN
     Route: 048
  25. ACTEMRA [Suspect]
     Active Substance: TOCILIZUMAB
  26. ACTEMRA [Suspect]
     Active Substance: TOCILIZUMAB
  27. CALCIUM CARBONATE. [Concomitant]
     Active Substance: CALCIUM CARBONATE
     Route: 048
  28. FISH OIL OMEGA 3 [Concomitant]
     Active Substance: FISH OIL
     Dosage: 360 TO  1200 MG CAPSULE
     Route: 048
  29. DELTASONE [Concomitant]
     Active Substance: PREDNISONE
     Dosage: 5 MG TABLET TOTAL 9 MG
     Route: 048
  30. PERI?COLACE [Concomitant]
     Active Substance: CASANTHRANOL\DOCUSATE SODIUM
     Route: 048
  31. ACTEMRA [Suspect]
     Active Substance: TOCILIZUMAB
  32. ACTEMRA [Suspect]
     Active Substance: TOCILIZUMAB
  33. ACTEMRA [Suspect]
     Active Substance: TOCILIZUMAB
  34. ACTEMRA [Suspect]
     Active Substance: TOCILIZUMAB
     Indication: PAIN
  35. VITAMIN D3 [Concomitant]
     Active Substance: CHOLECALCIFEROL
     Dosage: 2000 UNIT
     Route: 048
  36. PREDNISONE. [Concomitant]
     Active Substance: PREDNISONE

REACTIONS (3)
  - Stasis dermatitis [Unknown]
  - Blindness unilateral [Unknown]
  - Peripheral venous disease [Unknown]
